FAERS Safety Report 6236840-6 (Version None)
Quarter: 2009Q2

REPORT INFORMATION
  Report Type: 
  Country: None (occurrence: None)
  Receive Date: 20090619
  Receipt Date: 20090313
  Transmission Date: 20091009
  Serious: No
  Sender: FDA-Public Use
  Company Number: US-BAYER-200910841BCC

PATIENT
  Age: 40 Year
  Sex: Female
  Weight: 45 kg

DRUGS (1)
  1. FINACEA [Suspect]
     Indication: ROSACEA
     Route: 061
     Dates: start: 20090312, end: 20090312

REACTIONS (4)
  - BURNING SENSATION [None]
  - PRURITUS [None]
  - SKIN EXFOLIATION [None]
  - SKIN WRINKLING [None]
